FAERS Safety Report 8211100-2 (Version None)
Quarter: 2012Q1

REPORT INFORMATION
  Report Type: 
  Country: None (occurrence: None)
  Receive Date: 20120315
  Receipt Date: 20120313
  Transmission Date: 20120608
  Serious: Yes (Death, Hospitalization)
  Sender: FDA-Public Use
  Company Number: PHHY2012BE022099

PATIENT
  Sex: Female

DRUGS (2)
  1. ZOLEDRONOC ACID [Suspect]
     Indication: OSTEOPOROSIS
     Dosage: 5 MG, UNK
     Route: 042
     Dates: start: 20110401
  2. ANTICOAGULANTS [Concomitant]
     Dosage: UNK UKN, UNK

REACTIONS (2)
  - ACUTE PULMONARY OEDEMA [None]
  - INFECTION [None]
